FAERS Safety Report 19744644 (Version 1)
Quarter: 2021Q3

REPORT INFORMATION
  Report Type: Spontaneous
  Country: US (occurrence: US)
  Receive Date: 20210825
  Receipt Date: 20210825
  Transmission Date: 20211014
  Serious: No
  Sender: FDA-Public Use
  Company Number: US-PFIZER INC-202100998960

PATIENT
  Age: 55 Year
  Sex: Female

DRUGS (1)
  1. IBRANCE [Suspect]
     Active Substance: PALBOCICLIB
     Dosage: 100 MG
     Dates: start: 20210626

REACTIONS (5)
  - Illness [Unknown]
  - Dyspnoea [Unknown]
  - Lung disorder [Unknown]
  - Radiation injury [Unknown]
  - Candida infection [Unknown]

NARRATIVE: CASE EVENT DATE: 2021
